FAERS Safety Report 11124097 (Version 1)
Quarter: 2015Q2

REPORT INFORMATION
  Report Type: Spontaneous
  Country: US (occurrence: None)
  Receive Date: 20150519
  Receipt Date: 20150519
  Transmission Date: 20150821
  Serious: Yes (Disabling)
  Sender: FDA-Public Use
  Company Number: None

PATIENT
  Age: 64 Year
  Sex: Male
  Weight: 106.6 kg

DRUGS (15)
  1. CALCIUM-CHOLECALCIFEROLL D3 [Concomitant]
  2. ASPIRIN. [Concomitant]
     Active Substance: ASPIRIN
  3. NIACIN. [Concomitant]
     Active Substance: NIACIN
  4. QUETIAPINE (SEROQUEL) 400MG [Concomitant]
  5. LISINOPRIL (PRINIVIL, ZESTRIL) [Concomitant]
  6. QUETIAPINE (SEROQUEL) [Concomitant]
  7. LIGHT THERAPY FOR SEASONAL AFFECTIVE DISORDER [Concomitant]
  8. ZOLOFT [Concomitant]
     Active Substance: SERTRALINE HYDROCHLORIDE
  9. QUETIAPINE [Suspect]
     Active Substance: QUETIAPINE
     Indication: MENTAL DISORDER
     Dosage: 1-400MG TABLET, 90 PILLS, ONCE A DAY, BY MOUTH
     Route: 048
     Dates: start: 20120413
  10. TRIFLUOPERAZINE (STELAZINE) [Concomitant]
  11. SENNA [Concomitant]
     Active Substance: SENNA LEAF\SENNOSIDES\SENNOSIDES A AND B
  12. SIMVASTATIN (ZOCOR)? [Concomitant]
  13. TYLENOL [Concomitant]
     Active Substance: ACETAMINOPHEN
  14. IMIPRAMINE (TOFRANIL) [Concomitant]
  15. TRIAMTERENE-HYDROCHLOROTHIAZIDE (MAXZIDE) [Concomitant]

REACTIONS (1)
  - Paranoia [None]

NARRATIVE: CASE EVENT DATE: 20150128
